FAERS Safety Report 6254269-1 (Version None)
Quarter: 2009Q3

REPORT INFORMATION
  Report Type: 
  Country: None (occurrence: None)
  Receive Date: 20090702
  Receipt Date: 20090623
  Transmission Date: 20100115
  Serious: Yes (Hospitalization)
  Sender: FDA-Public Use
  Company Number: DK-JNJFOC-20090608458

PATIENT
  Age: 65 Year
  Sex: Female

DRUGS (2)
  1. REMICADE [Suspect]
     Indication: DRUG USE FOR UNKNOWN INDICATION
     Route: 042
  2. CORODIL [Concomitant]

REACTIONS (4)
  - ABASIA [None]
  - HYPERTENSION [None]
  - OPEN WOUND [None]
  - RASH ERYTHEMATOUS [None]
